FAERS Safety Report 9970506 (Version 1)
Quarter: 2014Q1

REPORT INFORMATION
  Report Type: Spontaneous
  Country: US (occurrence: None)
  Receive Date: 20140304
  Receipt Date: 20140304
  Transmission Date: 20141002
  Serious: Yes (Other)
  Sender: FDA-Public Use
  Company Number: 2014P1001901

PATIENT
  Age: 31 Year
  Sex: Male

DRUGS (6)
  1. HYDROCORTISONE [Suspect]
     Indication: COLITIS ULCERATIVE
     Route: 042
  2. HYDROCORTISONE [Suspect]
     Indication: CONDITION AGGRAVATED
     Route: 042
  3. CEFEPIME [Suspect]
     Indication: SEPSIS
     Route: 042
  4. VANCOMYCIN [Suspect]
     Indication: SEPSIS
     Route: 042
  5. METRONIDAZOLE [Suspect]
     Indication: SEPSIS
     Route: 042
  6. MESALAMINE [Concomitant]

REACTIONS (6)
  - Blindness unilateral [None]
  - Pyrexia [None]
  - Renal infarct [None]
  - Coagulation factor VIII level increased [None]
  - Anaemia [None]
  - Embolism arterial [None]
